FAERS Safety Report 4917612-9 (Version None)
Quarter: 2006Q1

REPORT INFORMATION
  Report Type: 
  Country: None (occurrence: None)
  Receive Date: 20060215
  Receipt Date: 20060206
  Transmission Date: 20060701
  Serious: Yes (Death, Disabling)
  Sender: FDA-Public Use
  Company Number: HQWYE695207FEB06

PATIENT
  Sex: Male

DRUGS (1)
  1. EFFEXOR XR [Suspect]

REACTIONS (8)
  - COMPLETED SUICIDE [None]
  - DRUG PRESCRIBING ERROR [None]
  - EMOTIONAL DISTRESS [None]
  - FEELING OF DESPAIR [None]
  - INJURY [None]
  - MENTAL DISORDER [None]
  - PAIN [None]
  - SUICIDAL IDEATION [None]
